FAERS Safety Report 10096302 (Version 2)
Quarter: 2014Q2

REPORT INFORMATION
  Report Type: Spontaneous
  Country: US (occurrence: US)
  Receive Date: 20140422
  Receipt Date: 20140422
  Transmission Date: 20141212
  Serious: No
  Sender: FDA-Public Use
  Company Number: US-GILEAD-2012-0058956

PATIENT
  Sex: Female

DRUGS (3)
  1. LETAIRIS [Suspect]
     Indication: PULMONARY ARTERIAL HYPERTENSION
     Dosage: 10 MG, UNK
     Route: 048
     Dates: start: 20090505
  2. TYVASO [Concomitant]
  3. REVATIO [Concomitant]

REACTIONS (5)
  - Malaise [Unknown]
  - Visual impairment [Unknown]
  - Nasopharyngitis [Unknown]
  - Dizziness [Unknown]
  - Dizziness [Unknown]
